FAERS Safety Report 6405847-8 (Version None)
Quarter: 2009Q4

REPORT INFORMATION
  Report Type: 
  Country: None (occurrence: None)
  Receive Date: 20091016
  Receipt Date: 20091016
  Transmission Date: 20100525
  Serious: Yes (Life-Threatening, Hospitalization)
  Sender: FDA-Public Use
  Company Number: None

PATIENT
  Age: 65 Year
  Sex: Female
  Weight: 89.5 kg

DRUGS (1)
  1. AMOXICILLIN [Suspect]
     Indication: PHARYNGITIS
     Dosage: ORALLY
     Route: 048
     Dates: start: 20090906, end: 20090907

REACTIONS (2)
  - STEVENS-JOHNSON SYNDROME [None]
  - TOXIC EPIDERMAL NECROLYSIS [None]
